FAERS Safety Report 7799982-X (Version None)
Quarter: 2011Q4

REPORT INFORMATION
  Report Type: 
  Country: None (occurrence: None)
  Receive Date: 20111006
  Receipt Date: 20110927
  Transmission Date: 20120403
  Serious: Yes (Other)
  Sender: FDA-Public Use
  Company Number: US-ROCHE-784149

PATIENT
  Sex: Male
  Weight: 81.72 kg

DRUGS (4)
  1. VALTREX [Concomitant]
  2. ACCUTANE [Suspect]
     Indication: ACNE
     Route: 065
     Dates: start: 20001229, end: 20010810
  3. ACCUTANE [Suspect]
     Route: 065
     Dates: start: 20031001, end: 20050415
  4. ACCUTANE [Suspect]
     Route: 065
     Dates: start: 20050608, end: 20070101

REACTIONS (4)
  - STRESS [None]
  - INFLAMMATORY BOWEL DISEASE [None]
  - HAEMORRHOIDS [None]
  - COLITIS ULCERATIVE [None]
